FAERS Safety Report 15517336 (Version 1)
Quarter: 2018Q4

REPORT INFORMATION
  Report Type: Spontaneous
  Country: FR (occurrence: FR)
  Receive Date: 20181017
  Receipt Date: 20181017
  Transmission Date: 20190205
  Serious: Yes (Hospitalization, Other)
  Sender: FDA-Public Use
  Company Number: FR-TEVA-2018-FR-964870

PATIENT
  Age: 80 Year
  Sex: Male

DRUGS (6)
  1. COUMADINE 2 MG, COMPRIM? S?CABLE [Suspect]
     Active Substance: WARFARIN SODIUM
     Indication: CARDIAC VALVE PROSTHESIS USER
     Dosage: 6 MILLIGRAM DAILY; 0-0-3
     Route: 048
     Dates: start: 201701
  2. FORTUM [Interacting]
     Active Substance: CEFTAZIDIME
     Indication: LUNG DISORDER
     Dosage: 3 GRAM DAILY; 1 FL-1-1
     Route: 042
     Dates: start: 20180213, end: 20180228
  3. ALLOPURINOL. [Concomitant]
     Active Substance: ALLOPURINOL
     Indication: HYPERURICAEMIA
     Dosage: 100 MILLIGRAM DAILY;
     Route: 048
     Dates: start: 201302
  4. KARDEGIC [Suspect]
     Active Substance: ASPIRIN DL-LYSINE
     Indication: CARDIAC VALVE PROSTHESIS USER
     Dosage: 75 MILLIGRAM DAILY; 1-0-0
     Route: 048
     Dates: start: 2012
  5. VANCOMYCINE [Suspect]
     Active Substance: VANCOMYCIN
     Indication: LUNG DISORDER
     Dosage: 375 ML DAILY; 1 FL-1-1
     Route: 042
     Dates: start: 20180213, end: 20180228
  6. TAHOR [Concomitant]
     Active Substance: ATORVASTATIN CALCIUM
     Indication: DYSLIPIDAEMIA
     Dosage: 100 MILLIGRAM DAILY;
     Route: 048
     Dates: start: 201302

REACTIONS (3)
  - Drug interaction [Unknown]
  - Rectal haemorrhage [Recovered/Resolved]
  - Haemorrhagic anaemia [Recovered/Resolved]

NARRATIVE: CASE EVENT DATE: 20180217
